FAERS Safety Report 14602611 (Version 1)
Quarter: 2018Q1

REPORT INFORMATION
  Report Type: Spontaneous
  Country: JP (occurrence: JP)
  Receive Date: 20180306
  Receipt Date: 20180306
  Transmission Date: 20180509
  Serious: Yes (Hospitalization, Other)
  Sender: FDA-Public Use
  Company Number: JP-BRISTOL-MYERS SQUIBB COMPANY-BMS-2018-020319

PATIENT
  Age: 61 Year
  Sex: Female

DRUGS (2)
  1. NEXIUM [Concomitant]
     Active Substance: ESOMEPRAZOLE MAGNESIUM
     Indication: PRODUCT USED FOR UNKNOWN INDICATION
     Route: 065
  2. OPDIVO [Suspect]
     Active Substance: NIVOLUMAB
     Indication: NON-SMALL CELL LUNG CANCER
     Dosage: 156 MG, UNK
     Route: 041
     Dates: start: 20160712, end: 20170501

REACTIONS (4)
  - Interstitial lung disease [Recovering/Resolving]
  - Infection [Unknown]
  - Intestinal obstruction [Unknown]
  - Enterocolitis [Recovering/Resolving]

NARRATIVE: CASE EVENT DATE: 20160906
